FAERS Safety Report 18649782 (Version 1)
Quarter: 2020Q4

REPORT INFORMATION
  Report Type: Spontaneous
  Country: NL (occurrence: NL)
  Receive Date: 20201222
  Receipt Date: 20201222
  Transmission Date: 20210114
  Serious: Yes (Other)
  Sender: FDA-Public Use
  Company Number: NL-TEVA-2020-NL-1859893

PATIENT
  Sex: Male
  Weight: 72 kg

DRUGS (1)
  1. DUTASTERIDE CAPSULE ZACHT 0,5MG / BRAND NAME NOT SPECIFIED [Suspect]
     Active Substance: DUTASTERIDE
     Indication: BENIGN PROSTATIC HYPERPLASIA
     Dosage: .5 MILLIGRAM DAILY; 1 X PER DAY 1 PIECE, 0.5 MG
     Dates: start: 20200103, end: 20201003

REACTIONS (4)
  - Depressed mood [Recovered/Resolved]
  - Nervousness [Recovered/Resolved]
  - Fatigue [Recovered/Resolved]
  - Suicidal ideation [Recovered/Resolved]
